FAERS Safety Report 4712204-9 (Version None)
Quarter: 2005Q3

REPORT INFORMATION
  Report Type: 
  Country: None (occurrence: None)
  Receive Date: 20050712
  Receipt Date: 20050705
  Transmission Date: 20060218
  Serious: Yes (Hospitalization)
  Sender: FDA-Public Use
  Company Number: US-ROCHE-409978

PATIENT
  Sex: Male

DRUGS (5)
  1. INVIRASE [Suspect]
     Route: 048
  2. RITONAVIR [Concomitant]
  3. TENOFOVIR [Concomitant]
  4. EMTRIVA [Concomitant]
  5. LEXIVA [Concomitant]

REACTIONS (2)
  - BLOOD TRIGLYCERIDES INCREASED [None]
  - CEREBROVASCULAR ACCIDENT [None]
